FAERS Safety Report 22152022 (Version 1)
Quarter: 2023Q1

REPORT INFORMATION
  Report Type: Spontaneous
  Country: BR (occurrence: BR)
  Receive Date: 20230329
  Receipt Date: 20230329
  Transmission Date: 20230417
  Serious: Yes (Other)
  Sender: FDA-Public Use
  Company Number: BR-TEVA-2022-BR-2840807

PATIENT
  Age: 68 Year
  Sex: Male

DRUGS (4)
  1. NEOTIGASON [Suspect]
     Active Substance: ACITRETIN
     Indication: Erythrodermic psoriasis
     Dosage: 25 MILLIGRAM DAILY;
     Route: 048
     Dates: start: 202207
  2. NEOTIGASON [Suspect]
     Active Substance: ACITRETIN
     Indication: Psoriasis
  3. NEOTIGASON [Suspect]
     Active Substance: ACITRETIN
     Indication: Psoriasis
  4. BETAMETHASONE [Concomitant]
     Active Substance: BETAMETHASONE
     Indication: Product used for unknown indication

REACTIONS (9)
  - Intracranial mass [Unknown]
  - Skin exfoliation [Not Recovered/Not Resolved]
  - Headache [Not Recovered/Not Resolved]
  - Lip dry [Not Recovered/Not Resolved]
  - Inflammation [Not Recovered/Not Resolved]
  - Pain in extremity [Not Recovered/Not Resolved]
  - Diarrhoea [Recovered/Resolved]
  - Flushing [Recovered/Resolved]
  - Sticky skin [Recovered/Resolved]

NARRATIVE: CASE EVENT DATE: 20220101
